FAERS Safety Report 8813058 (Version 1)
Quarter: 2012Q4

REPORT INFORMATION
  Report Type: 
  Country: US (occurrence: US)
  Receive Date: 20120927
  Receipt Date: 20120927
  Transmission Date: 20130627
  Serious: Yes (Death, Hospitalization)
  Sender: FDA-Public Use
  Company Number: US-ACTELION-A-NJ2012-71750

PATIENT
  Age: 55 Year
  Sex: Female

DRUGS (3)
  1. TRACLEER [Suspect]
     Indication: PULMONARY ARTERIAL HYPERTENSION
     Dosage: UNK
     Route: 048
     Dates: end: 20120906
  2. ADCIRCA [Concomitant]
  3. PLAVIX [Concomitant]

REACTIONS (3)
  - Completed suicide [Fatal]
  - Overdose [Fatal]
  - Unresponsive to stimuli [Fatal]
